FAERS Safety Report 25266609 (Version 2)
Quarter: 2025Q3

REPORT INFORMATION
  Report Type: Spontaneous
  Country: EU (occurrence: EU)
  Receive Date: 20250505
  Receipt Date: 20250908
  Transmission Date: 20251020
  Serious: Yes (Hospitalization, Other)
  Sender: NOVARTIS
  Company Number: None

PATIENT
  Age: 38 Year
  Sex: Female
  Weight: 80.5 kg

DRUGS (4)
  1. KESIMPTA [Suspect]
     Active Substance: OFATUMUMAB
     Indication: Multiple sclerosis
     Dosage: 20 MG, QW, (3 INJECTIONS AU TOTAL)
     Route: 058
     Dates: start: 20250224, end: 20250310
  2. KESIMPTA [Suspect]
     Active Substance: OFATUMUMAB
     Route: 065
     Dates: start: 20250217
  3. KESIMPTA [Suspect]
     Active Substance: OFATUMUMAB
     Route: 065
     Dates: start: 20250224
  4. KESIMPTA [Suspect]
     Active Substance: OFATUMUMAB
     Route: 065
     Dates: start: 20250303

REACTIONS (7)
  - Autoimmune hepatitis [Recovering/Resolving]
  - Hepatitis [Unknown]
  - Hepatic cytolysis [Unknown]
  - Cholestasis [Unknown]
  - Hepatocellular injury [Unknown]
  - Jaundice [Unknown]
  - Prothrombin time ratio decreased [Unknown]

NARRATIVE: CASE EVENT DATE: 20250411
